FAERS Safety Report 17863064 (Version 1)
Quarter: 2020Q2

REPORT INFORMATION
  Report Type: Spontaneous
  Country: ES (occurrence: ES)
  Receive Date: 20200605
  Receipt Date: 20200605
  Transmission Date: 20200714
  Serious: Yes (Death, Other)
  Sender: FDA-Public Use
  Company Number: ES-AMGEN-ESPSP2020086589

PATIENT

DRUGS (2)
  1. CINACALCET HCL [Suspect]
     Active Substance: CINACALCET HYDROCHLORIDE
     Indication: HYPERPARATHYROIDISM TERTIARY
     Dosage: UNK UNK, QD
     Route: 048
  2. PREDNISONE. [Concomitant]
     Active Substance: PREDNISONE
     Dosage: 5 MILLIGRAM, QD

REACTIONS (9)
  - Chronic obstructive pulmonary disease [Fatal]
  - Gastrointestinal disorder [Unknown]
  - Transplant rejection [Unknown]
  - Pathological fracture [Unknown]
  - Blood 25-hydroxycholecalciferol decreased [Unknown]
  - Hypercalcaemia [Unknown]
  - Glomerular filtration rate decreased [Unknown]
  - Off label use [Unknown]
  - Hypocalcaemia [Unknown]
